FAERS Safety Report 5420667-9 (Version None)
Quarter: 2007Q3

REPORT INFORMATION
  Report Type: 
  Country: None (occurrence: None)
  Receive Date: 20070821
  Receipt Date: 20070820
  Transmission Date: 20080115
  Serious: Yes (Other)
  Sender: FDA-Public Use
  Company Number: CH-BRISTOL-MYERS SQUIBB COMPANY-13882287

PATIENT
  Age: 77 Year
  Sex: Female
  Weight: 60 kg

DRUGS (6)
  1. IRBESARTAN [Suspect]
     Route: 048
     Dates: start: 20070501, end: 20070713
  2. LASIX [Concomitant]
     Route: 048
  3. MARCUMAR [Concomitant]
     Route: 048
  4. CONCOR [Concomitant]
     Route: 048
  5. CALCIMAGON [Concomitant]
     Route: 048
  6. CHONDROSULF [Concomitant]
     Route: 048

REACTIONS (1)
  - MIXED HEPATOCELLULAR-CHOLESTATIC INJURY [None]
